FAERS Safety Report 24349149 (Version 2)
Quarter: 2024Q4

REPORT INFORMATION
  Report Type: Report from Study
  Country: GB (occurrence: GB)
  Receive Date: 20240923
  Receipt Date: 20241212
  Transmission Date: 20250115
  Serious: Yes (Other)
  Sender: ABBVIE
  Company Number: GB-ABBVIE-5927489

PATIENT
  Age: 57 Year
  Sex: Male

DRUGS (1)
  1. SKYRIZI [Suspect]
     Active Substance: RISANKIZUMAB-RZAA
     Indication: Psoriasis
     Dosage: FORM STRENGTH: 150 MG
     Route: 058
     Dates: start: 20221223

REACTIONS (9)
  - Spinal fracture [Unknown]
  - Insomnia [Unknown]
  - Dizziness [Recovered/Resolved]
  - Fear of injection [Unknown]
  - Pain [Unknown]
  - Fall [Unknown]
  - Asthma [Unknown]
  - Blood pressure abnormal [Unknown]
  - Dizziness [Unknown]

NARRATIVE: CASE EVENT DATE: 20240901
